FAERS Safety Report 9288737 (Version 1)
Quarter: 2013Q2

REPORT INFORMATION
  Report Type: Spontaneous
  Country: US (occurrence: None)
  Receive Date: 20130509
  Receipt Date: 20130509
  Transmission Date: 20140414
  Serious: Yes (Life-Threatening, Other)
  Sender: FDA-Public Use
  Company Number: FK201301423

PATIENT
  Age: 11 Year
  Sex: Male

DRUGS (3)
  1. BUPIVACAINE HYDROCHLORIDE AND EPINEPHRINE [Suspect]
     Indication: EPIDURAL ANALGESIA
     Dosage: 5ML, EPIDURAL.
  2. BUPIVACAINE) (MANUFACTURER UNKNOWN) (BUPIVACAINE) [Concomitant]
  3. LIDOCAINE / EPINEPHRINE 1, 5% (MANUFACTURER UNKNOWN) (LICOCAINE/EPINEPHRINE) (LIDOCAINE/EPINEPHRINE) [Concomitant]

REACTIONS (6)
  - Brown-Sequard syndrome [None]
  - Infarction [None]
  - Hypotension [None]
  - Unresponsive to stimuli [None]
  - Apnoea [None]
  - Paresis [None]
